FAERS Safety Report 4645968-3 (Version None)
Quarter: 2005Q2

REPORT INFORMATION
  Report Type: 
  Country: None (occurrence: None)
  Receive Date: 20050425
  Receipt Date: 20050408
  Transmission Date: 20051028
  Serious: Yes (Other)
  Sender: FDA-Public Use
  Company Number: 8008638

PATIENT
  Age: 42 Year
  Sex: Female
  Weight: 72.72 kg

DRUGS (8)
  1. KEPPRA [Suspect]
     Indication: CONVULSION
     Dosage: 1000 MG 2/D PO
     Route: 048
     Dates: start: 20041201
  2. PHENOBARBITAL [Suspect]
     Indication: CONVULSION
     Dosage: 210 MG /D PO
     Route: 048
     Dates: end: 20040101
  3. PHENOBARBITAL [Suspect]
     Indication: CONVULSION
     Dosage: 150 MG /D PO
     Route: 048
  4. STRATTERA [Suspect]
     Indication: ATTENTION DEFICIT/HYPERACTIVITY DISORDER
     Dosage: 40 MG /D PO
     Route: 048
  5. STRATTERA [Suspect]
     Indication: ATTENTION DEFICIT/HYPERACTIVITY DISORDER
     Dosage: 80 MG /D PO
     Route: 048
  6. LEXAPRO [Concomitant]
  7. SYNTHROID [Concomitant]
  8. MULTI-VITAMINS [Concomitant]

REACTIONS (4)
  - ABORTION SPONTANEOUS [None]
  - DRUG EXPOSURE DURING PREGNANCY [None]
  - LETHARGY [None]
  - PREGNANCY [None]
